FAERS Safety Report 15723123 (Version 1)
Quarter: 2018Q4

REPORT INFORMATION
  Report Type: Spontaneous
  Country: US (occurrence: US)
  Receive Date: 20181214
  Receipt Date: 20181214
  Transmission Date: 20190205
  Serious: Yes (Life-Threatening, Hospitalization)
  Sender: FDA-Public Use
  Company Number: None

PATIENT
  Age: 68 Year
  Sex: Male
  Weight: 102.2 kg

DRUGS (5)
  1. SIMVASTATIN. [Concomitant]
     Active Substance: SIMVASTATIN
  2. TOPIRAMATE. [Concomitant]
     Active Substance: TOPIRAMATE
  3. BUPROPION. [Concomitant]
     Active Substance: BUPROPION
  4. AIMOVIG [Suspect]
     Active Substance: ERENUMAB-AOOE
     Indication: MIGRAINE PROPHYLAXIS
     Dates: start: 20181210
  5. CYCLOBENZAPARIN [Concomitant]

REACTIONS (2)
  - Seizure [None]
  - Subarachnoid haemorrhage [None]

NARRATIVE: CASE EVENT DATE: 20181212
